FAERS Safety Report 8621738-6 (Version None)
Quarter: 2012Q3

REPORT INFORMATION
  Report Type: 
  Country: None (occurrence: None)
  Receive Date: 20120821
  Receipt Date: 20120821
  Transmission Date: 20120928
  Serious: No
  Sender: FDA-Public Use
  Company Number: None

PATIENT

DRUGS (1)
  1. TALWIN NX [Suspect]
     Dates: start: 20120817

REACTIONS (5)
  - HYPERHIDROSIS [None]
  - FEELING HOT [None]
  - HALLUCINATION [None]
  - DYSPNOEA [None]
  - INSOMNIA [None]
